FAERS Safety Report 5086777-3 (Version None)
Quarter: 2006Q3

REPORT INFORMATION
  Report Type: 
  Country: None (occurrence: None)
  Receive Date: 20060818
  Receipt Date: 20060807
  Transmission Date: 20061208
  Serious: Yes (Death)
  Sender: FDA-Public Use
  Company Number: US018072

PATIENT
  Age: 70 Year
  Sex: Female
  Weight: 136.0791 kg

DRUGS (2)
  1. PROVIGIL [Suspect]
     Indication: HYPERSOMNIA
     Dosage: 100MG OR 200MG
     Dates: start: 20060701, end: 20060701
  2. PROVIGIL [Suspect]
     Indication: SLEEP APNOEA SYNDROME
     Dosage: 100MG OR 200MG
     Dates: start: 20060701, end: 20060701

REACTIONS (2)
  - CHRONIC RESPIRATORY FAILURE [None]
  - GENERAL PHYSICAL HEALTH DETERIORATION [None]
